FAERS Safety Report 4660256-7 (Version None)
Quarter: 2005Q2

REPORT INFORMATION
  Report Type: 
  Country: None (occurrence: None)
  Receive Date: 20050427
  Receipt Date: 20050107
  Transmission Date: 20051028
  Serious: No
  Sender: FDA-Public Use
  Company Number: 211557

PATIENT
  Age: 41 Year
  Sex: Male
  Weight: 88.4 kg

DRUGS (7)
  1. XOLAIR [Suspect]
     Indication: ASTHMA
     Dosage: 375 MG, Q2W, SUBCUTANEOUS
     Route: 058
     Dates: start: 20041013, end: 20041124
  2. ADVAIR (SALMETEROL XINAFOATE, FLUTICASONE PROPIONATE) [Concomitant]
  3. HYDROCHLOROTHIAZIDE [Concomitant]
  4. ALBUTEROL (ALBUTEROL SULFATE, ALBUTEROL) [Concomitant]
  5. SINGULAIR [Concomitant]
  6. ATROVENT (IPORATROPIUM BROMIDE) [Concomitant]
  7. CALAN [Concomitant]

REACTIONS (2)
  - BONE PAIN [None]
  - INJECTION SITE REACTION [None]
